FAERS Safety Report 15014038 (Version 1)
Quarter: 2018Q2

REPORT INFORMATION
  Report Type: Spontaneous
  Country: US (occurrence: US)
  Receive Date: 20180522
  Receipt Date: 20180522
  Transmission Date: 20180711
  Serious: Yes (Death)
  Sender: FDA-Public Use
  Company Number: None

PATIENT
  Age: 83 Year
  Sex: Male

DRUGS (13)
  1. ALLOPURINOL. [Concomitant]
     Active Substance: ALLOPURINOL
  2. CHOLESYTRMAINE [Concomitant]
  3. ELIQUIS [Concomitant]
     Active Substance: APIXABAN
  4. HYDROCHLOROTHIAZIDE. [Concomitant]
     Active Substance: HYDROCHLOROTHIAZIDE
  5. LISINOPRIL. [Concomitant]
     Active Substance: LISINOPRIL
  6. TAMSULOSIN [Concomitant]
     Active Substance: TAMSULOSIN
  7. CARVEDILOL. [Concomitant]
     Active Substance: CARVEDILOL
  8. RESTASIS [Concomitant]
     Active Substance: CYCLOSPORINE
  9. ZYTIGA [Suspect]
     Active Substance: ABIRATERONE ACETATE
     Indication: PROSTATE CANCER METASTATIC
     Dosage: 4 TABLETS (1000 MG) ONCE DAILY NO FOOD BY MOUTH
     Route: 048
     Dates: start: 20160131, end: 20180429
  10. WARFARIN [Concomitant]
     Active Substance: WARFARIN
  11. PRAVASTATIN. [Concomitant]
     Active Substance: PRAVASTATIN
  12. PREDNISONE. [Concomitant]
     Active Substance: PREDNISONE
  13. FUROSEMIDE. [Concomitant]
     Active Substance: FUROSEMIDE

REACTIONS (1)
  - Death [None]

NARRATIVE: CASE EVENT DATE: 20180429
